FAERS Safety Report 8539674-2 (Version None)
Quarter: 2012Q3

REPORT INFORMATION
  Report Type: 
  Country: None (occurrence: None)
  Receive Date: 20120726
  Receipt Date: 20110720
  Transmission Date: 20120928
  Serious: No
  Sender: FDA-Public Use
  Company Number: US-ASTRAZENECA-2008UW01953

PATIENT
  Age: 14644 Day
  Sex: Female
  Weight: 68 kg

DRUGS (17)
  1. LEXAPRO [Concomitant]
     Dates: start: 20030801, end: 20070701
  2. EFFEXOR [Concomitant]
  3. SEROQUEL [Suspect]
     Indication: AFFECTIVE DISORDER
     Route: 048
     Dates: start: 20031201
  4. TOPAMAX [Concomitant]
  5. SEROQUEL [Suspect]
     Indication: BIPOLAR DISORDER
     Route: 048
     Dates: start: 20031201
  6. CELEXA [Concomitant]
  7. TRILEPTAL [Concomitant]
  8. PEPCID [Concomitant]
  9. ESKALITH CR [Concomitant]
  10. METFORMIN HYDROCHLORIDE [Concomitant]
  11. ZANTAC [Concomitant]
  12. LEXAPRO [Concomitant]
  13. LITHIUM CARBONATE [Concomitant]
     Dates: start: 20030301
  14. NEXIUM [Concomitant]
  15. SEROQUEL [Suspect]
     Dosage: 200 - 800 MG
     Route: 048
     Dates: start: 20031201
  16. SEROQUEL [Suspect]
     Dosage: 200 - 800 MG
     Route: 048
     Dates: start: 20031201
  17. KLONOPIN [Concomitant]

REACTIONS (19)
  - OBESITY [None]
  - GLOSSITIS [None]
  - POLYSUBSTANCE DEPENDENCE [None]
  - BLOOD TRIGLYCERIDES INCREASED [None]
  - TYPE 2 DIABETES MELLITUS [None]
  - GASTROOESOPHAGEAL REFLUX DISEASE [None]
  - LIMB TRAUMATIC AMPUTATION [None]
  - BACK PAIN [None]
  - BRONCHITIS [None]
  - EYE IRRITATION [None]
  - CELLULITIS [None]
  - SINOBRONCHITIS [None]
  - CERVICITIS [None]
  - ACUTE TONSILLITIS [None]
  - UPPER RESPIRATORY TRACT INFECTION [None]
  - CHEST PAIN [None]
  - INJURY [None]
  - BRONCHOSPASM [None]
  - BORDERLINE PERSONALITY DISORDER [None]
